FAERS Safety Report 5839854-0 (Version None)
Quarter: 2008Q3

REPORT INFORMATION
  Report Type: 
  Country: None (occurrence: None)
  Receive Date: 20080811
  Receipt Date: 20080727
  Transmission Date: 20090109
  Serious: Yes (Life-Threatening, Hospitalization)
  Sender: FDA-Public Use
  Company Number: CA-KINGPHARMUSA00001-K200800876

PATIENT

DRUGS (10)
  1. AVINZA [Suspect]
     Dosage: UNK, UNK
  2. ESCITALOPRAM [Suspect]
     Indication: DEPRESSION
     Dosage: UNK, UNK
  3. DIAZEPAM [Suspect]
     Dosage: UNK, UNK
  4. ZOPICLONE [Suspect]
     Dosage: UNK, UNK
  5. LORAZEPAM [Suspect]
     Dosage: UNK, UNK
  6. ACETAMINOPHEN AND OXYCODONE HCL [Suspect]
     Dosage: UNK, UNK
  7. CITALOPRAM HYDROBROMIDE [Suspect]
     Dosage: UNK, UNK
  8. OXYCODONE HCL EXTENDED-RELEASE [Suspect]
     Dosage: UNK, UNK
  9. OXYCODONE HCL EXTENDED-RELEASE [Suspect]
     Dosage: UNK, UNK
  10. ALTACE [Concomitant]
     Indication: HYPERTENSION
     Dosage: 5 MG, QD

REACTIONS (8)
  - BRADYCARDIA [None]
  - DRUG INTERACTION [None]
  - ELECTROCARDIOGRAM ABNORMAL [None]
  - ELECTROCARDIOGRAM QT PROLONGED [None]
  - HYPERKALAEMIA [None]
  - LOSS OF CONSCIOUSNESS [None]
  - MULTIPLE DRUG OVERDOSE [None]
  - SINUS TACHYCARDIA [None]
